FAERS Safety Report 11904723 (Version 2)
Quarter: 2016Q1

REPORT INFORMATION
  Report Type: Spontaneous
  Country: US (occurrence: US)
  Receive Date: 20160108
  Receipt Date: 20160202
  Transmission Date: 20160526
  Serious: No
  Sender: FDA-Public Use
  Company Number: US-PFIZER INC-2015401053

PATIENT
  Age: 65 Year
  Sex: Female

DRUGS (8)
  1. HYZAAR [Suspect]
     Active Substance: HYDROCHLOROTHIAZIDE\LOSARTAN POTASSIUM
     Indication: BLOOD PRESSURE ABNORMAL
     Dosage: 25 MG, DAILY (ONCE A DAY)
     Dates: start: 2002
  2. MELOXICAM. [Suspect]
     Active Substance: MELOXICAM
     Indication: PAIN
     Dosage: 7.5 MG, DAILY (ONCE A DAY)
     Dates: start: 201305
  3. CALTRATE 600 + D PLUS MINERAL [Suspect]
     Active Substance: CALCIUM\CHOLECALCIFEROL\COPPER\MAGNESIUM\MANGANESE\ZINC
     Indication: BONE DENSITY ABNORMAL
  4. AMLODIPINE BESILATE [Suspect]
     Active Substance: AMLODIPINE BESYLATE
     Indication: BLOOD PRESSURE ABNORMAL
     Dosage: 5 MG, DAILY (ONCE A DAY)
     Dates: start: 2002
  5. CITRACAL CALCIUM SUPPLEMENT + D3 [Concomitant]
     Dosage: UNK
  6. CALTRATE 600 + D PLUS MINERAL [Suspect]
     Active Substance: CALCIUM\CHOLECALCIFEROL\COPPER\MAGNESIUM\MANGANESE\ZINC
     Indication: MINERAL SUPPLEMENTATION
     Dosage: 1 DF, 2X/DAY (USED 14 DAY THEN QUIT)
  7. CARBIDOPA LEVODOPA [Suspect]
     Active Substance: CARBIDOPA\LEVODOPA
     Indication: PARKINSON^S DISEASE
     Dosage: 100 MG, 3X/DAY
     Dates: start: 20150513
  8. COQ10 100MG PLUS L-CARNITINE [Concomitant]
     Indication: MUSCLE SPASMS
     Dosage: UNK, 2X/DAY
     Dates: start: 2010

REACTIONS (4)
  - Constipation [Recovered/Resolved]
  - Gastrointestinal motility disorder [Recovered/Resolved]
  - Dry skin [Unknown]
  - Painful defaecation [Recovered/Resolved]
